FAERS Safety Report 10064457 (Version 1)
Quarter: 2014Q2

REPORT INFORMATION
  Report Type: Spontaneous
  Country: GB (occurrence: None)
  Receive Date: 20140404
  Receipt Date: 20140404
  Transmission Date: 20141212
  Serious: Yes (Disabling, Other)
  Sender: FDA-Public Use
  Company Number: AUR-APL-2014-04005

PATIENT
  Age: 50 Year
  Sex: Female
  Weight: 99.15 kg

DRUGS (7)
  1. METFORMIN [Suspect]
     Indication: PRODUCT USED FOR UNKNOWN INDICATION
     Dosage: 1000MG (500MG, 2 IN 1 D),ORAL
     Route: 048
     Dates: start: 20140121, end: 20140202
  2. CO-CODAMOL (PANADEINE CO) [Concomitant]
  3. GLICLAZIDE (GLICLAZIDE) [Concomitant]
  4. HUMULIN I (INSULIN HUMAN INJECTION, ISOPHANE) [Concomitant]
  5. LANSOPRAZOLE (LANSOPRAZOLE) [Concomitant]
  6. RAMIPRIL (RAMIPRIL) [Concomitant]
  7. SIMVASTATIN (SIMVASTATIN) [Concomitant]

REACTIONS (5)
  - Wheezing [None]
  - Swelling face [None]
  - Swelling [None]
  - Dyspnoea [None]
  - Weight increased [None]
